FAERS Safety Report 4621558-3 (Version None)
Quarter: 2005Q1

REPORT INFORMATION
  Report Type: 
  Country: None (occurrence: None)
  Receive Date: 20050328
  Receipt Date: 20040831
  Transmission Date: 20050727
  Serious: Yes (Disabling)
  Sender: FDA-Public Use
  Company Number: 8754

PATIENT
  Age: 46 Year
  Sex: Female

DRUGS (1)
  1. FLUPHENAZINE [Suspect]
     Indication: SCHIZOPHRENIA
     Dosage: 25 MG FORTNIGHTLY

REACTIONS (4)
  - MACULAR DEGENERATION [None]
  - MACULOPATHY [None]
  - OCULAR TOXICITY [None]
  - VISUAL ACUITY REDUCED [None]
